FAERS Safety Report 25698588 (Version 1)
Quarter: 2025Q3

REPORT INFORMATION
  Report Type: Spontaneous
  Country: GB (occurrence: GB)
  Receive Date: 20250819
  Receipt Date: 20250819
  Transmission Date: 20251021
  Serious: Yes (Other)
  Sender: AUROBINDO
  Company Number: GB-MHRA-MED-202508061216346580-MTYGK

PATIENT
  Age: 88 Year
  Sex: Female

DRUGS (1)
  1. CLARITHROMYCIN [Suspect]
     Active Substance: CLARITHROMYCIN
     Indication: Infection
     Dosage: 250 MILLIGRAM, TWO TIMES A DAY
     Route: 065
     Dates: start: 20240620, end: 20240626

REACTIONS (1)
  - Exfoliative rash [Recovered/Resolved]

NARRATIVE: CASE EVENT DATE: 20240626
